FAERS Safety Report 4490141-5 (Version None)
Quarter: 2004Q4

REPORT INFORMATION
  Report Type: 
  Country: None (occurrence: None)
  Receive Date: 20041028
  Receipt Date: 20041014
  Transmission Date: 20050328
  Serious: Yes (Hospitalization)
  Sender: FDA-Public Use
  Company Number: 189807

PATIENT
  Age: 56 Year
  Sex: Female
  Weight: 42.6381 kg

DRUGS (8)
  1. AVONEX [Suspect]
     Indication: MULTIPLE SCLEROSIS
     Dosage: 30 MCG QW; IM
     Route: 030
     Dates: start: 19960101
  2. AVONEX [Suspect]
     Indication: MULTIPLE SCLEROSIS
     Dosage: 30 MCG QW; IM
     Route: 030
     Dates: start: 20000101, end: 20031001
  3. AVONEX [Suspect]
     Indication: MULTIPLE SCLEROSIS
     Dosage: 30 MCG QW; IM
     Route: 030
     Dates: start: 20031001
  4. MEDICATION FOR MUSCLE SPASMS (NOS) [Concomitant]
  5. DANTRIUM [Concomitant]
  6. VITAMINS NOS [Concomitant]
  7. PREMPRO [Concomitant]
  8. PREDNISONE [Concomitant]

REACTIONS (10)
  - ANEURYSM [None]
  - BACK PAIN [None]
  - BREAST CANCER [None]
  - CAROTID ARTERY ANEURYSM [None]
  - CERVIX NEOPLASM [None]
  - INTRACRANIAL ANEURYSM [None]
  - OPTIC NERVE DISORDER [None]
  - POST PROCEDURAL COMPLICATION [None]
  - RETROPERITONEAL HAEMATOMA [None]
  - URINARY TRACT INFECTION [None]
